FAERS Safety Report 7162209-6 (Version None)
Quarter: 2010Q4

REPORT INFORMATION
  Report Type: 
  Country: None (occurrence: None)
  Receive Date: 20101215
  Receipt Date: 20090914
  Transmission Date: 20110411
  Serious: Yes (Other)
  Sender: FDA-Public Use
  Company Number: GB-PFIZER INC-2009267887

PATIENT
  Age: 60 Year

DRUGS (2)
  1. LYRICA [Suspect]
     Indication: NEURALGIA
     Dosage: 100 MG, UNK
     Route: 048
     Dates: start: 20081203, end: 20090312
  2. CO-CODAMOL [Suspect]
     Indication: OSTEOARTHRITIS
     Dosage: UNK
     Route: 048
     Dates: start: 19980101

REACTIONS (1)
  - ACQUIRED HAEMOPHILIA [None]
